FAERS Safety Report 6836365-0 (Version None)
Quarter: 2010Q2

REPORT INFORMATION
  Report Type: 
  Country: None (occurrence: None)
  Receive Date: 20100629
  Receipt Date: 20100326
  Transmission Date: 20101027
  Serious: No
  Sender: FDA-Public Use
  Company Number: US-WYE-H14405910

PATIENT
  Age: 83 Year
  Sex: Male

DRUGS (1)
  1. TORISEL [Suspect]
     Indication: RENAL CANCER
     Dosage: 25 MG, INTRAVENOUS
     Route: 042
     Dates: start: 20100301

REACTIONS (2)
  - INJECTION SITE EXTRAVASATION [None]
  - URTICARIA [None]
